FAERS Safety Report 4371056-X (Version None)
Quarter: 2004Q2

REPORT INFORMATION
  Report Type: 
  Country: None (occurrence: None)
  Receive Date: 20040601
  Receipt Date: 20040517
  Transmission Date: 20050107
  Serious: Yes (Hospitalization, Other)
  Sender: FDA-Public Use
  Company Number: 2004033084

PATIENT
  Age: 45 Year
  Sex: Male

DRUGS (4)
  1. ZITHROMAX [Suspect]
     Indication: UPPER RESPIRATORY TRACT INFLAMMATION
     Dosage: 500 MG (1D), ORAL
     Route: 048
     Dates: end: 20040101
  2. ANTIINFLAMMATORY/ANTIRHEUMATIC NON-STEROIDS (ANTIINFLAMMATORY/ANTIRHEU [Concomitant]
  3. TEPRENONE (TEPRENONE) [Concomitant]
  4. LOXOPROFEN SODIUM (LOXOPROFEN SODIUM) [Concomitant]

REACTIONS (3)
  - CONVULSION [None]
  - ENCEPHALITIS VIRAL [None]
  - MENINGITIS VIRAL [None]
